FAERS Safety Report 5344594-0 (Version None)
Quarter: 2007Q2

REPORT INFORMATION
  Report Type: 
  Country: None (occurrence: None)
  Receive Date: 20070604
  Receipt Date: 20070423
  Transmission Date: 20071010
  Serious: Yes (Other)
  Sender: FDA-Public Use
  Company Number: US-AMGEN-US226219

PATIENT
  Age: 52 Year
  Sex: Female

DRUGS (2)
  1. PROCRIT [Suspect]
     Indication: ANAEMIA OF MALIGNANT DISEASE
  2. DEXAMETHASONE [Suspect]
     Route: 048

REACTIONS (2)
  - DRUG INTERACTION POTENTIATION [None]
  - METASTASES TO CENTRAL NERVOUS SYSTEM [None]
